FAERS Safety Report 8453345-2 (Version None)
Quarter: 2012Q2

REPORT INFORMATION
  Report Type: 
  Country: None (occurrence: None)
  Receive Date: 20120620
  Receipt Date: 20120615
  Transmission Date: 20120825
  Serious: Yes (Death)
  Sender: FDA-Public Use
  Company Number: US-SANOFI-AVENTIS-2012SA043156

PATIENT

DRUGS (4)
  1. DOCETAXEL [Suspect]
     Indication: NON-SMALL CELL LUNG CANCER
     Route: 065
  2. ETOPOSIDE [Suspect]
     Indication: NON-SMALL CELL LUNG CANCER
     Dosage: ON DAYS 1 THROUGH 5 AND 29 THROUGH 33
     Route: 065
  3. CISPLATIN [Suspect]
     Indication: NON-SMALL CELL LUNG CANCER
     Dosage: ON DAYS 1, 8, 29 AND 36
     Route: 065
  4. THERAPEUTIC RADIOPHARMACEUTICALS [Suspect]
     Indication: NON-SMALL CELL LUNG CANCER
     Dosage: 1.8 GY/D ON 5 DAYS/WEEK FOR 5 WEEKS; FOLLOWED BY 2.0 GY FRACTIONS EACH DAY;TOTAL DOSE: 61 GY.
     Route: 065

REACTIONS (1)
  - PNEUMONIA ASPIRATION [None]
